FAERS Safety Report 16982667 (Version 1)
Quarter: 2019Q4

REPORT INFORMATION
  Report Type: Spontaneous
  Country: FR (occurrence: FR)
  Receive Date: 20191101
  Receipt Date: 20191101
  Transmission Date: 20200122
  Serious: Yes (Other)
  Sender: FDA-Public Use
  Company Number: FR-ACCORD-159521

PATIENT
  Age: 90 Year
  Sex: Male

DRUGS (10)
  1. ALLOPURINOL. [Suspect]
     Active Substance: ALLOPURINOL
     Indication: HYPERURICAEMIA
     Route: 048
     Dates: start: 20190909, end: 20190913
  2. NORMACOL [Concomitant]
     Active Substance: HERBALS\KARAYA GUM
  3. DOLIPRANE [Concomitant]
     Active Substance: ACETAMINOPHEN
  4. PREGABALIN. [Concomitant]
     Active Substance: PREGABALIN
  5. AMIODARONE [Concomitant]
     Active Substance: AMIODARONE
  6. DUPHALAC [Concomitant]
     Active Substance: LACTULOSE
  7. FINASTERIDE. [Concomitant]
     Active Substance: FINASTERIDE
  8. PAROXETINE/PAROXETINE HYDROCHLORIDE/PAROXETINE MESILATE [Concomitant]
  9. LAMALINE (ATROPA BELLADONNA EXTRACT\CAFFEINE\PAPAVER SOMNIFERUM TINCTURE\PARACETAMOL) [Concomitant]
     Active Substance: ACETAMINOPHEN\BELLADONNA LEAF\CAFFEINE\OPIUM
  10. PREVISCAN [Concomitant]

REACTIONS (2)
  - Dermatitis bullous [Recovered/Resolved]
  - Rash erythematous [Recovered/Resolved]

NARRATIVE: CASE EVENT DATE: 20190912
